FAERS Safety Report 15943808 (Version 1)
Quarter: 2019Q1

REPORT INFORMATION
  Report Type: Spontaneous
  Country: US (occurrence: US)
  Receive Date: 20190118
  Receipt Date: 20190118
  Transmission Date: 20190417
  Serious: No
  Sender: FDA-Public Use
  Company Number: None

PATIENT
  Age: 64 Year
  Sex: Male

DRUGS (1)
  1. GLEEVEC [Suspect]
     Active Substance: IMATINIB MESYLATE
     Route: 048
     Dates: start: 20171222

REACTIONS (4)
  - Abdominal pain upper [None]
  - Eczema [None]
  - Fatigue [None]
  - Psoriasis [None]

NARRATIVE: CASE EVENT DATE: 20190118
